FAERS Safety Report 5515710-2 (Version None)
Quarter: 2007Q4

REPORT INFORMATION
  Report Type: 
  Country: None (occurrence: None)
  Receive Date: 20071113
  Receipt Date: 20070907
  Transmission Date: 20080405
  Serious: No
  Sender: FDA-Public Use
  Company Number: A0679708A

PATIENT
  Age: 86 Year
  Sex: Female

DRUGS (4)
  1. COREG [Suspect]
     Indication: HYPERTENSION
     Dosage: 12.5MG PER DAY
     Route: 048
     Dates: end: 20070706
  2. HYZAAR [Concomitant]
  3. GLIPIZIDE [Concomitant]
  4. COUMADIN [Concomitant]

REACTIONS (2)
  - BLISTER [None]
  - PHARMACEUTICAL PRODUCT COMPLAINT [None]
